FAERS Safety Report 6568315-9 (Version None)
Quarter: 2010Q1

REPORT INFORMATION
  Report Type: 
  Country: None (occurrence: None)
  Receive Date: 20100203
  Receipt Date: 20100126
  Transmission Date: 20100710
  Serious: Yes (Hospitalization, Other)
  Sender: FDA-Public Use
  Company Number: CA-ELI_LILLY_AND_COMPANY-CA200911001738

PATIENT
  Age: 31 Year
  Sex: Female

DRUGS (7)
  1. FORTEO [Suspect]
     Indication: OSTEOPOROSIS
     Dosage: 20 UG, DAILY (1/D)
     Route: 058
     Dates: start: 20090404
  2. SYNTHROID [Concomitant]
  3. YASMIN [Concomitant]
  4. MULTI-VITAMIN [Concomitant]
  5. LACTULOSE [Concomitant]
  6. VITAMIN D [Concomitant]
  7. LOVAZA [Concomitant]

REACTIONS (2)
  - FALL [None]
  - FEMORAL NECK FRACTURE [None]
